FAERS Safety Report 7948914-X (Version None)
Quarter: 2011Q4

REPORT INFORMATION
  Report Type: 
  Country: None (occurrence: None)
  Receive Date: 20111130
  Receipt Date: 20111125
  Transmission Date: 20120403
  Serious: Yes (Death, Hospitalization)
  Sender: FDA-Public Use
  Company Number: PHHY2011MX104190

PATIENT
  Sex: Male

DRUGS (1)
  1. DIOVAN HCT [Suspect]
     Indication: HYPERTENSION
     Dosage: 1 DF (320 MG VALS AND 12.5 MG HYDRO), DAILY
     Dates: start: 20100101

REACTIONS (4)
  - INFLUENZA [None]
  - RESPIRATORY TRACT INFECTION [None]
  - PYREXIA [None]
  - CEREBRAL ARTERY EMBOLISM [None]
